FAERS Safety Report 25079915 (Version 2)
Quarter: 2025Q1

REPORT INFORMATION
  Report Type: Spontaneous
  Country: US (occurrence: US)
  Receive Date: 20250314
  Receipt Date: 20250318
  Transmission Date: 20250408
  Serious: No
  Sender: CALLIDITAS THERAPEUTICS AB
  Company Number: US-Calliditas-2025CAL00672

PATIENT
  Age: 59 Year
  Sex: Female

DRUGS (8)
  1. TARPEYO [Suspect]
     Active Substance: BUDESONIDE
     Indication: IgA nephropathy
     Route: 048
     Dates: start: 20250215
  2. ATOVAQUONE [Concomitant]
     Active Substance: ATOVAQUONE
  3. VITAMIN D3 [Concomitant]
     Active Substance: CHOLECALCIFEROL
  4. PROLIA [Concomitant]
     Active Substance: DENOSUMAB
  5. PEPCID [Concomitant]
     Active Substance: FAMOTIDINE
  6. SYNTHROID [Concomitant]
     Active Substance: LEVOTHYROXINE SODIUM
  7. RITUXIMAB [Concomitant]
     Active Substance: RITUXIMAB
  8. PREDNISONE [Concomitant]
     Active Substance: PREDNISONE

REACTIONS (2)
  - Abdominal pain upper [Unknown]
  - Muscle spasms [Not Recovered/Not Resolved]
